FAERS Safety Report 23035394 (Version 2)
Quarter: 2024Q2

REPORT INFORMATION
  Report Type: Report from Study
  Country: DE (occurrence: DE)
  Receive Date: 20231005
  Receipt Date: 20240412
  Transmission Date: 20240716
  Serious: Yes (Death, Hospitalization)
  Sender: FDA-Public Use
  Company Number: DE-ABBVIE-5438273

PATIENT
  Age: 67 Year
  Sex: Female

DRUGS (1)
  1. RINVOQ [Suspect]
     Active Substance: UPADACITINIB
     Indication: Rheumatoid arthritis
     Route: 048
     Dates: start: 202107

REACTIONS (5)
  - Intervertebral discitis [Fatal]
  - Staphylococcal infection [Unknown]
  - Osteoporotic fracture [Unknown]
  - Ileus paralytic [Unknown]
  - Fungal skin infection [Unknown]

NARRATIVE: CASE EVENT DATE: 20230325
